FAERS Safety Report 7233176-1 (Version None)
Quarter: 2011Q1

REPORT INFORMATION
  Report Type: 
  Country: None (occurrence: None)
  Receive Date: 20110119
  Receipt Date: 20110115
  Transmission Date: 20110831
  Serious: Yes (Hospitalization)
  Sender: FDA-Public Use
  Company Number: A0794881A

PATIENT
  Sex: Female
  Weight: 64.1 kg

DRUGS (6)
  1. LAPATINIB [Suspect]
     Indication: HEAD AND NECK CANCER
     Dosage: 1500MG PER DAY
     Route: 048
     Dates: start: 20090514
  2. NORMAL SALINE [Concomitant]
     Indication: ASTHENIA
     Dosage: 1000ML AS REQUIRED
     Route: 042
     Dates: start: 20090629, end: 20090703
  3. CISPLATIN [Suspect]
     Indication: HEAD AND NECK CANCER
     Dosage: 100MGM2 CYCLIC
     Route: 042
     Dates: start: 20090522
  4. RADIATION [Suspect]
     Indication: HEAD AND NECK CANCER
     Dosage: 4GY VARIABLE DOSE
     Route: 061
     Dates: start: 20090522
  5. MULTI-VITAMIN [Concomitant]
     Indication: ASTHENIA
     Dosage: 1AMP TWICE PER DAY
     Route: 042
     Dates: start: 20090629, end: 20090703
  6. RANTAC [Concomitant]
     Indication: HYPERCHLORHYDRIA
     Route: 042
     Dates: start: 20090629, end: 20090703

REACTIONS (1)
  - FEBRILE NEUTROPENIA [None]
